FAERS Safety Report 6260582-4 (Version None)
Quarter: 2009Q3

REPORT INFORMATION
  Report Type: 
  Country: None (occurrence: None)
  Receive Date: 20090708
  Receipt Date: 20090706
  Transmission Date: 20100115
  Serious: Yes (Other)
  Sender: FDA-Public Use
  Company Number: JP-B.I. PHARMACEUTICALS,INC./RIDGEFIELD-2009-BP-07117NB

PATIENT
  Age: 36 Year
  Sex: Male

DRUGS (7)
  1. MICARDIS [Suspect]
     Indication: HYPERTENSION
     Dosage: 80 MG
     Route: 048
  2. LIPITOR [Suspect]
     Dosage: 10 MG
     Route: 048
  3. GLUFAST [Concomitant]
     Route: 048
  4. GLYCORAN [Concomitant]
     Route: 048
  5. ACTOS [Concomitant]
     Route: 048
  6. ZYLORIC [Concomitant]
     Route: 048
  7. BASEN [Concomitant]
     Route: 048

REACTIONS (5)
  - BLOOD CREATININE INCREASED [None]
  - DRUG ABUSE [None]
  - MALAISE [None]
  - OEDEMA [None]
  - SUICIDE ATTEMPT [None]
